FAERS Safety Report 8777258 (Version 1)
Quarter: 2012Q4

REPORT INFORMATION
  Report Type: 
  Country: IE (occurrence: IE)
  Receive Date: 20120910
  Receipt Date: 20120910
  Transmission Date: 20130627
  Serious: Yes (Hospitalization, Disabling)
  Sender: FDA-Public Use
  Company Number: IE-ALLERGAN-1212433US

PATIENT
  Age: 12 Year
  Sex: Male

DRUGS (1)
  1. BOTOX [Suspect]
     Indication: LEG SPASTICITY
     Dosage: UNK
     Dates: start: 2008

REACTIONS (1)
  - Pneumonia aspiration [Unknown]
